FAERS Safety Report 24792792 (Version 1)
Quarter: 2024Q4

REPORT INFORMATION
  Report Type: Spontaneous
  Country: US (occurrence: US)
  Receive Date: 20241231
  Receipt Date: 20241231
  Transmission Date: 20250115
  Serious: Yes (Hospitalization, Other)
  Sender: UCB
  Company Number: US-UCBSA-2024067921

PATIENT
  Age: 67 Year
  Sex: Female
  Weight: 82.3 kg

DRUGS (9)
  1. KEPPRA [Suspect]
     Active Substance: LEVETIRACETAM
     Indication: Seizure
     Dosage: 500 MILLIGRAM, 2X/DAY (BID)
     Route: 048
     Dates: start: 2021
  2. LADIRATUZUMAB VEDOTIN [Suspect]
     Active Substance: LADIRATUZUMAB VEDOTIN
     Indication: Triple negative breast cancer
     Dosage: 1.25 MG/KG, DAY 1 AND DAY 8 (OFF DAY 15) IN EVERY 21-DAY CYCLE
     Route: 042
     Dates: start: 20230222, end: 20230426
  3. PEMBROLIZUMAB [Suspect]
     Active Substance: PEMBROLIZUMAB
     Indication: Triple negative breast cancer
     Dosage: 200 MILLIGRAM, EV 3 WEEKS
     Route: 042
     Dates: start: 20230222, end: 20230419
  4. XARELTO [Suspect]
     Active Substance: RIVAROXABAN
     Indication: Cerebrovascular accident
     Dosage: 20 MILLIGRAM, ONCE DAILY (QD)
     Route: 048
     Dates: start: 2021
  5. METOPROLOL [Suspect]
     Active Substance: METOPROLOL
     Indication: Hypertension
     Dosage: 50 MILLIGRAM, 2X/DAY (BID)
     Route: 048
     Dates: start: 2018
  6. DRONABINOL [Suspect]
     Active Substance: DRONABINOL
     Indication: Decreased appetite
     Dosage: 5 MILLIGRAM, 2X/DAY (BID)
     Dates: start: 20230503
  7. ATORVASTATIN [Concomitant]
     Active Substance: ATORVASTATIN
     Indication: Hyperlipidaemia
     Dosage: UNK
     Route: 048
     Dates: start: 2018
  8. LISINOPRIL [Concomitant]
     Active Substance: LISINOPRIL
     Indication: Hypertension
     Dosage: UNK
     Route: 048
     Dates: start: 2018
  9. NIFEDIPINE [Concomitant]
     Active Substance: NIFEDIPINE
     Indication: Hypertension
     Dosage: UNK
     Route: 048
     Dates: start: 2018

REACTIONS (17)
  - Atrial fibrillation [Recovered/Resolved]
  - Dehydration [Recovered/Resolved]
  - Generalised tonic-clonic seizure [Recovered/Resolved]
  - Hemiparesis [Unknown]
  - Hypokalaemia [Unknown]
  - Somnolence [Unknown]
  - Hyponatraemia [Unknown]
  - Dysgeusia [Not Recovered/Not Resolved]
  - Decreased appetite [Not Recovered/Not Resolved]
  - Urinary tract infection [Not Recovered/Not Resolved]
  - Hypomagnesaemia [Recovered/Resolved]
  - Hypophagia [Unknown]
  - Diarrhoea [Unknown]
  - Constipation [Unknown]
  - Nausea [Unknown]
  - Performance status decreased [Unknown]
  - Treatment noncompliance [Unknown]

NARRATIVE: CASE EVENT DATE: 20230302
